FAERS Safety Report 6814659-2 (Version None)
Quarter: 2010Q2

REPORT INFORMATION
  Report Type: 
  Country: None (occurrence: None)
  Receive Date: 20100628
  Receipt Date: 20100621
  Transmission Date: 20101027
  Serious: Yes (Other)
  Sender: FDA-Public Use
  Company Number: OPER20100041

PATIENT
  Age: 46 Year
  Sex: Female
  Weight: 63.5036 kg

DRUGS (2)
  1. OPANA ER [Suspect]
     Indication: BACK PAIN
     Dosage: 20 MG, Q12H, ORAL; 20 MG, Q8H, ORAL
     Route: 048
  2. OXYCODONE (OXYCODONE) (UNKNOWN) (OXYCODONE) [Concomitant]

REACTIONS (4)
  - ANXIETY [None]
  - CHILLS [None]
  - DRUG INEFFECTIVE [None]
  - RHINORRHOEA [None]
